FAERS Safety Report 20556446 (Version 1)
Quarter: 2022Q1

REPORT INFORMATION
  Report Type: Spontaneous
  Country: GB (occurrence: GB)
  Receive Date: 20220305
  Receipt Date: 20220305
  Transmission Date: 20220423
  Serious: Yes (Other)
  Sender: FDA-Public Use
  Company Number: GB-MHRA-MED-202202170940095520-OBKLW

PATIENT
  Age: 37 Year
  Sex: Female
  Weight: 70 kg

DRUGS (2)
  1. METRONIDAZOLE [Suspect]
     Active Substance: METRONIDAZOLE
     Indication: Bacterial infection
     Dosage: 400 MILLIGRAM, TWO TIMES A DAY
     Route: 065
  2. SYMBICORT [Concomitant]
     Active Substance: BUDESONIDE\FORMOTEROL FUMARATE DIHYDRATE
     Indication: Asthma prophylaxis
     Dosage: UNK
     Route: 065

REACTIONS (5)
  - Flushing [Recovered/Resolved]
  - Adjustment disorder with depressed mood [Unknown]
  - Memory impairment [Recovering/Resolving]
  - Feeling abnormal [Unknown]
  - Lethargy [Unknown]

NARRATIVE: CASE EVENT DATE: 20220110
